FAERS Safety Report 21231377 (Version 1)
Quarter: 2022Q3

REPORT INFORMATION
  Report Type: Spontaneous
  Country: CN (occurrence: CN)
  Receive Date: 20220819
  Receipt Date: 20220819
  Transmission Date: 20221026
  Serious: Yes (Hospitalization, Other)
  Sender: FDA-Public Use
  Company Number: None

PATIENT
  Age: 2 Year
  Sex: Male
  Weight: 11 kg

DRUGS (9)
  1. CYCLOPHOSPHAMIDE [Suspect]
     Active Substance: CYCLOPHOSPHAMIDE
     Indication: Thalassaemia
     Dosage: UNK (PRIOR REGIMEN)
     Route: 041
  2. CYCLOPHOSPHAMIDE [Suspect]
     Active Substance: CYCLOPHOSPHAMIDE
     Dosage: 0.6 G, QD (DILUTED WITH NS 100ML)
     Route: 041
     Dates: start: 20220801, end: 20220801
  3. SODIUM CHLORIDE [Suspect]
     Active Substance: SODIUM CHLORIDE
     Indication: Medication dilution
     Dosage: 100 ML, QD (DILUTED WITH FLUDARABINE 50 MG)
     Route: 041
     Dates: start: 20220729, end: 20220801
  4. SODIUM CHLORIDE [Suspect]
     Active Substance: SODIUM CHLORIDE
     Dosage: 100 ML, QD (DILUTED WITH CYCLOPHOSPHAMIDE FOR INJECTION 0.6 G)
     Route: 041
     Dates: start: 20220801, end: 20220801
  5. FLUDARA [Suspect]
     Active Substance: FLUDARABINE PHOSPHATE
     Indication: Thalassaemia
     Dosage: UNK (PRIOR REGIMEN)
     Route: 041
  6. FLUDARA [Suspect]
     Active Substance: FLUDARABINE PHOSPHATE
     Dosage: 50 MG, Q6H (DILUTED WITH NS 50 ML)
     Route: 041
     Dates: start: 20220729, end: 20220801
  7. BUSULFAN [Suspect]
     Active Substance: BUSULFAN
     Indication: Thalassaemia
     Dosage: UNK (PRIOR REGIMEN)
     Route: 041
  8. BUSULFAN [Suspect]
     Active Substance: BUSULFAN
     Dosage: 12 MG, Q6H (DILUTED WITH NS 50 ML)
     Route: 041
     Dates: start: 20220728, end: 20220728
  9. SODIUM CHLORIDE [Suspect]
     Active Substance: SODIUM CHLORIDE
     Indication: Medication dilution
     Dosage: 50 ML, Q6H (DILUTED WITH BUSULFAN 12 MG)
     Route: 041
     Dates: start: 20220728, end: 20220728

REACTIONS (10)
  - White blood cell count decreased [Recovered/Resolved]
  - Neutrophil count decreased [Recovered/Resolved]
  - Thrombocytopenia [Recovered/Resolved]
  - Cytopenia [Unknown]
  - Anaemia [Recovering/Resolving]
  - Thrombocytopenia [Recovering/Resolving]
  - Neutrophil count decreased [Recovering/Resolving]
  - Myelosuppression [Unknown]
  - White blood cell count decreased [Unknown]
  - Hepatic function abnormal [Unknown]

NARRATIVE: CASE EVENT DATE: 20220806
